FAERS Safety Report 17877609 (Version 1)
Quarter: 2020Q2

REPORT INFORMATION
  Report Type: Spontaneous
  Country: CN (occurrence: CN)
  Receive Date: 20200609
  Receipt Date: 20200609
  Transmission Date: 20200714
  Serious: Yes (Other)
  Sender: FDA-Public Use
  Company Number: CN-PFIZER INC-2020222091

PATIENT
  Age: 74 Year
  Sex: Male

DRUGS (3)
  1. SODIUM CHLORIDE. [Concomitant]
     Active Substance: SODIUM CHLORIDE
     Indication: ABDOMINAL PAIN
     Dosage: 100 ML, 3X/DAY
     Route: 041
     Dates: start: 20200604, end: 20200604
  2. TAZOCIN [Suspect]
     Active Substance: PIPERACILLIN SODIUM\TAZOBACTAM SODIUM
     Indication: ABDOMINAL PAIN
     Dosage: 4.5 G, 3X/DAY
     Route: 041
     Dates: start: 20200604, end: 20200604
  3. TAZOCIN [Suspect]
     Active Substance: PIPERACILLIN SODIUM\TAZOBACTAM SODIUM
     Indication: ANTI-INFECTIVE THERAPY

REACTIONS (10)
  - Dizziness [Recovering/Resolving]
  - Respiratory rate increased [Unknown]
  - Rash [Recovering/Resolving]
  - Blood pressure diastolic decreased [Unknown]
  - Hypersensitivity [Recovering/Resolving]
  - Vomiting [Recovering/Resolving]
  - Hyperhidrosis [Unknown]
  - Pruritus [Unknown]
  - Temperature intolerance [Recovering/Resolving]
  - Nausea [Recovering/Resolving]

NARRATIVE: CASE EVENT DATE: 20200604
